FAERS Safety Report 16797313 (Version 1)
Quarter: 2019Q3

REPORT INFORMATION
  Report Type: Spontaneous
  Country: US (occurrence: US)
  Receive Date: 20190912
  Receipt Date: 20190912
  Transmission Date: 20191005
  Serious: No
  Sender: FDA-Public Use
  Company Number: US-BIOGEN-2019BI00748842

PATIENT
  Sex: Female

DRUGS (2)
  1. AVONEX [Suspect]
     Active Substance: INTERFERON BETA-1A
     Indication: MULTIPLE SCLEROSIS
     Route: 065
     Dates: start: 19980301, end: 20031212
  2. AVONEX [Suspect]
     Active Substance: INTERFERON BETA-1A
     Dosage: 28-OCT-2014 TO 14-MAY-2015
     Route: 030
     Dates: start: 20131130, end: 20150625

REACTIONS (3)
  - Bradykinesia [Unknown]
  - Fine motor skill dysfunction [Unknown]
  - Motor dysfunction [Not Recovered/Not Resolved]
